FAERS Safety Report 4618407-6 (Version None)
Quarter: 2005Q1

REPORT INFORMATION
  Report Type: 
  Country: None (occurrence: None)
  Receive Date: 20050324
  Receipt Date: 20050315
  Transmission Date: 20050727
  Serious: Yes (Hospitalization)
  Sender: FDA-Public Use
  Company Number: US-MERCK-0503USA02552

PATIENT
  Age: 42 Year
  Sex: Female

DRUGS (2)
  1. VIOXX [Suspect]
     Indication: PAIN
     Route: 048
     Dates: start: 20040501, end: 20040817
  2. TOPROL-XL [Concomitant]
     Route: 065

REACTIONS (5)
  - ADVERSE EVENT [None]
  - CHEST DISCOMFORT [None]
  - DYSGEUSIA [None]
  - HYPOAESTHESIA [None]
  - HYPOAESTHESIA ORAL [None]
